FAERS Safety Report 25812222 (Version 1)
Quarter: 2025Q3

REPORT INFORMATION
  Report Type: Other
  Country: MD (occurrence: MD)
  Receive Date: 20250917
  Receipt Date: 20250917
  Transmission Date: 20251021
  Serious: Yes (Other)
  Sender: MACLEODS
  Company Number: MD-MACLEODS PHARMA-MAC2025055182

PATIENT

DRUGS (4)
  1. PYRAZINAMIDE [Suspect]
     Active Substance: PYRAZINAMIDE
     Indication: Pulmonary tuberculosis
     Dosage: 1 TABLET 400 MG 4 TIMES A DAY
     Route: 048
     Dates: start: 20240716, end: 20240731
  2. ISONIAZID [Suspect]
     Active Substance: ISONIAZID
     Indication: Pulmonary tuberculosis
     Dosage: 1 TABLET PER 1 DAY (MICRO LABS LIMITED, INDIA)
     Route: 048
     Dates: start: 20240716, end: 20240731
  3. RIFAPENTINE [Suspect]
     Active Substance: RIFAPENTINE
     Indication: Pulmonary tuberculosis
     Dosage: 4 TABLETS AT 300 MG PER DAY (LUPIN LTD, INDIA)
     Route: 048
     Dates: start: 20240716, end: 20240731
  4. MOXIFLOXACIN HYDROCHLORIDE [Suspect]
     Active Substance: MOXIFLOXACIN HYDROCHLORIDE
     Indication: Pulmonary tuberculosis
     Dosage: 1 TABLET 400 MG PER 1 DAY (MSN LABORATORIES PRIVATE LIMITED, INDIA)
     Route: 048
     Dates: start: 20240716, end: 20240731

REACTIONS (1)
  - Hepatitis [Recovered/Resolved]

NARRATIVE: CASE EVENT DATE: 20240801
